FAERS Safety Report 19172683 (Version 1)
Quarter: 2021Q2

REPORT INFORMATION
  Report Type: Spontaneous
  Country: US (occurrence: US)
  Receive Date: 20210422
  Receipt Date: 20210422
  Transmission Date: 20210717
  Serious: No
  Sender: FDA-Public Use
  Company Number: None

PATIENT
  Age: 35 Year
  Sex: Female
  Weight: 54 kg

DRUGS (2)
  1. ZYTEC [Concomitant]
  2. CLOMIPHENE [Suspect]
     Active Substance: CLOMIPHENE
     Indication: INFERTILITY
     Dosage: ?          QUANTITY:5 MG;?
     Route: 048
     Dates: start: 20210101, end: 20210305

REACTIONS (2)
  - Vitreous floaters [None]
  - Visual impairment [None]

NARRATIVE: CASE EVENT DATE: 20210302
